FAERS Safety Report 6996925-3 (Version None)
Quarter: 2010Q3

REPORT INFORMATION
  Report Type: 
  Country: None (occurrence: None)
  Receive Date: 20100918
  Receipt Date: 20090921
  Transmission Date: 20110219
  Serious: No
  Sender: FDA-Public Use
  Company Number: US-WYE-H10539509

PATIENT
  Sex: Female
  Weight: 65.83 kg

DRUGS (5)
  1. EFFEXOR XR [Suspect]
     Indication: DEPRESSION
     Route: 048
     Dates: start: 19990101, end: 20050101
  2. EFFEXOR XR [Suspect]
     Route: 048
     Dates: start: 20050101, end: 20060101
  3. EFFEXOR XR [Suspect]
     Route: 048
     Dates: start: 20050101, end: 20080101
  4. EFFEXOR XR [Suspect]
     Dosage: OPENED CAP AND TAKEN OUT 3-5 GRAINS
     Route: 048
     Dates: start: 20080101
  5. TRIAMTERENE AND HYDROCHLOROTHIAZIDE [Concomitant]

REACTIONS (6)
  - AFFECT LABILITY [None]
  - DRUG WITHDRAWAL SYNDROME [None]
  - HYPERTENSION [None]
  - IRRITABILITY [None]
  - SOMNOLENCE [None]
  - WRONG TECHNIQUE IN DRUG USAGE PROCESS [None]
